FAERS Safety Report 9390951 (Version 1)
Quarter: 2013Q3

REPORT INFORMATION
  Report Type: Spontaneous
  Country: DE (occurrence: None)
  Receive Date: 20130705
  Receipt Date: 20130705
  Transmission Date: 20140515
  Serious: Yes (Death, Hospitalization)
  Sender: FDA-Public Use
  Company Number: DE-008087

PATIENT
  Age: 70 Year
  Sex: Female
  Weight: 53 kg

DRUGS (1)
  1. CHLORAMBUCIL (CHLORAMBUCIL) (UNKNOWN) [Suspect]
     Indication: CHRONIC LYMPHOCYTIC LEUKAEMIA
     Dosage: 10 MG/M2, DAYS 1-7 EVERY 28 DAYS, ORAL
     Route: 048
     Dates: start: 20100420

REACTIONS (4)
  - Febrile infection [None]
  - Diarrhoea [None]
  - Oropharyngeal pain [None]
  - Pneumococcal sepsis [None]
